FAERS Safety Report 13014615 (Version 2)
Quarter: 2017Q2

REPORT INFORMATION
  Report Type: Spontaneous
  Country: US (occurrence: US)
  Receive Date: 20161209
  Receipt Date: 20170613
  Transmission Date: 20170830
  Serious: No
  Sender: FDA-Public Use
  Company Number: US-PFIZER INC-2014144420

PATIENT
  Age: 44 Year
  Sex: Female
  Weight: 108.84 kg

DRUGS (39)
  1. PAXIL [Concomitant]
     Active Substance: PAROXETINE HYDROCHLORIDE
     Dosage: 50 MG, DAILY (TAKE 1 TABLET BY MOUTH EVERY MORNING IN ADDITION TO 40 MILLIGRAM, TABLET TO EQUAL 50)
     Route: 048
  2. DEMADEX [Concomitant]
     Active Substance: TORSEMIDE
     Dosage: 20 MG, 2X/WEEK (TAKE IN THE AM 2 TIMES A WEEK. M-W-F)
  3. COUMADINE [Concomitant]
     Active Substance: WARFARIN SODIUM
     Dosage: 1 MG, 1X/DAY
     Route: 048
  4. MYCOSTATIN [Concomitant]
     Active Substance: NYSTATIN
     Indication: RASH
     Dosage: UNK UNK, AS NEEDED (100,000 UNIT/GRAM CREAM; APPLY TOPICALLY 2 (TWO) TIMES DAILY AS NEEDED)
     Route: 061
  5. COLACE [Concomitant]
     Active Substance: DOCUSATE SODIUM
     Dosage: 100 MG, 2X/DAY
     Route: 048
  6. POTASSIUM [Concomitant]
     Active Substance: POTASSIUM
     Dosage: 2 POTASSIUM IN THE AM AND ONE POTASSIUM AT NIGHT
  7. LYRICA [Suspect]
     Active Substance: PREGABALIN
     Indication: NEUROPATHY PERIPHERAL
     Dosage: 75 MG, 2X/DAY
     Route: 048
  8. LASIX [Concomitant]
     Active Substance: FUROSEMIDE
     Dosage: 120 MG, DAILY (TAKE TWO TABS IN THE AM (80 MG TOTAL) AND ONE TAB IN THE LATE AFTERNOON (40 MG))
  9. VITAMIN D [Concomitant]
     Active Substance: CHOLECALCIFEROL
     Dosage: 2000 IU, UNK
     Route: 048
  10. SUPER B COMPLEX WITH VITAMIN C [Concomitant]
     Indication: HYPOVITAMINOSIS
     Dosage: 150 MG, DAILY
     Route: 048
  11. ZAROXOLYN [Concomitant]
     Active Substance: METOLAZONE
     Dosage: 5 MG, TAKE WITH THE LASIX T-TH-SAT-SUN
  12. COUMADINE [Concomitant]
     Active Substance: WARFARIN SODIUM
     Dosage: 5 MG, 1X/DAY
  13. PRILOSEC [Concomitant]
     Active Substance: OMEPRAZOLE MAGNESIUM
     Dosage: 20 MG, 1X/DAY (TAKE ONE CAPSULE BY MOUTH EVERY MORNING BEFORE BREAKFAST. DO NOT CRUSH OR CHEW.)
     Route: 048
  14. MOTRIN [Concomitant]
     Active Substance: IBUPROFEN
     Dosage: 800 MG, 3X/DAY
     Route: 048
  15. FLEXERIL [Concomitant]
     Active Substance: CYCLOBENZAPRINE HYDROCHLORIDE
     Indication: MUSCLE SPASMS
     Dosage: 10 MG, AS NEEDED (TAKE 1 TAB BY MOUTH 2 (TWO) TIMES DAILY AS NEEDED )
     Route: 048
  16. LASIX [Concomitant]
     Active Substance: FUROSEMIDE
     Dosage: 40 MG, 2X/DAY
     Route: 048
  17. VISTARIL [Concomitant]
     Active Substance: HYDROXYZINE PAMOATE
     Dosage: 50 MG, 2X/DAY
     Route: 048
  18. NEXIUM [Concomitant]
     Active Substance: ESOMEPRAZOLE MAGNESIUM
     Dosage: 20 MG, 1X/DAY
     Route: 048
  19. SUBOXONE [Concomitant]
     Active Substance: BUPRENORPHINE HYDROCHLORIDE\NALOXONE HYDROCHLORIDE
     Dosage: 1 DF, 2X/DAY [BUPRENORPHINE HYDROCHLORIDE: 8, NALOXONE HYDROCHLORIDE: 2 MG]
     Route: 060
  20. IMITREX [Concomitant]
     Active Substance: SUMATRIPTAN SUCCINATE
     Indication: MIGRAINE
     Dosage: 100 MG, AS NEEDED ONCE AS NEEDED FOR MIGRAINE, MAY REPEAT IN 2 HOURS IF NO RELIEF
     Route: 048
  21. HYDRODIURIL [Concomitant]
     Active Substance: HYDROCHLOROTHIAZIDE
     Dosage: 25 MG, 1X/DAY
     Route: 048
  22. SUBOXONE [Concomitant]
     Active Substance: BUPRENORPHINE HYDROCHLORIDE\NALOXONE HYDROCHLORIDE
     Dosage: 1 DF, 3X/DAY, [BUPRENORPHINE HYDROCHLORIDE: 8, NALOXONE HYDROCHLORIDE: 2 MG]
     Route: 060
  23. LYRICA [Suspect]
     Active Substance: PREGABALIN
     Indication: SWELLING
     Dosage: 50 MG, 2X/DAY (1 CAP OF AM  AND AFTERNOON)
  24. FLEXERIL [Concomitant]
     Active Substance: CYCLOBENZAPRINE HYDROCHLORIDE
     Dosage: 10 MG, 2X/DAY
     Route: 048
  25. K-DUR [Concomitant]
     Active Substance: POTASSIUM CHLORIDE
     Dosage: 20 MEQ, 3X/DAY
     Route: 048
  26. VITAMIN D [Concomitant]
     Active Substance: CHOLECALCIFEROL
     Dosage: 4000 IU, 1X/DAY
     Route: 048
  27. KAY CIEL [Concomitant]
     Active Substance: POTASSIUM CHLORIDE
     Dosage: 15 ML, 1X/DAY (WITH EACH LASIX DOSE)
     Route: 048
  28. DESYREL [Concomitant]
     Active Substance: TRAZODONE HYDROCHLORIDE
     Indication: SLEEP DISORDER
     Dosage: 50 MG, 1X/DAY (ONE TABLET BY MOUTH AT NIGHT. GOAL IS 6 HOURS OF UNINTERRUPTED SLEEP AND NOT WAKE UP)
     Route: 048
  29. DESYREL [Concomitant]
     Active Substance: TRAZODONE HYDROCHLORIDE
     Indication: SOMNOLENCE
  30. LYRICA [Suspect]
     Active Substance: PREGABALIN
     Indication: DEEP VEIN THROMBOSIS
     Dosage: 150 MG, 1X/DAY HS
     Route: 048
  31. ADVIL [Concomitant]
     Active Substance: IBUPROFEN
     Dosage: 800 MG, 3X/DAY
     Route: 048
  32. PRAVACHOL [Concomitant]
     Active Substance: PRAVASTATIN SODIUM
     Dosage: 20 MG, DAILY
     Route: 048
  33. LYRICA [Suspect]
     Active Substance: PREGABALIN
     Indication: NEUROPATHY PERIPHERAL
     Dosage: 150 MG, 2X/DAY (1 CAP OF AM  AND AFTERNOON)
     Route: 048
     Dates: start: 20140424
  34. CELEBREX [Concomitant]
     Active Substance: CELECOXIB
     Dosage: 200 MG, 2X/DAY
     Route: 048
  35. SUDAFED [Concomitant]
     Active Substance: PSEUDOEPHEDRINE HYDROCHLORIDE
     Indication: NASAL CONGESTION
     Dosage: 30 MG, AS NEEDED (TAKE 1 TAB BY MOUTH EVERY 4 TO 6 (FOUR TO SIX) HOURS AS NEEDED )
     Route: 048
  36. FLEXERIL [Concomitant]
     Active Substance: CYCLOBENZAPRINE HYDROCHLORIDE
     Dosage: 10 MG, AS NEEDED (TAKE 1 TAB BY MOUTH 2 (TWO) TIMES DAILY AS NEEDED )
     Route: 048
  37. PAXIL [Concomitant]
     Active Substance: PAROXETINE HYDROCHLORIDE
     Dosage: 40 MG, 1X/DAY
     Route: 048
  38. COUMADINE [Concomitant]
     Active Substance: WARFARIN SODIUM
     Dosage: 5 MG TABLET 1-3 TABS BY MOUTH ONCE DAILY
     Route: 048
  39. POTASSIUM CHLORIDE. [Concomitant]
     Active Substance: POTASSIUM CHLORIDE
     Dosage: 7.5 ML, 1X/DAY
     Route: 048

REACTIONS (4)
  - Visual acuity reduced [Not Recovered/Not Resolved]
  - Drug ineffective [Unknown]
  - Somnolence [Unknown]
  - Fatigue [Unknown]
